FAERS Safety Report 16624558 (Version 1)
Quarter: 2019Q3

REPORT INFORMATION
  Report Type: Spontaneous
  Country: JP (occurrence: JP)
  Receive Date: 20190724
  Receipt Date: 20190724
  Transmission Date: 20191004
  Serious: Yes (Death, Hospitalization)
  Sender: FDA-Public Use
  Company Number: JP-ACTELION-A-CH2019-193417

PATIENT
  Age: 50 Year
  Sex: Female

DRUGS (7)
  1. MILRINONE [Concomitant]
     Active Substance: MILRINONE
  2. CYCLOPHOSPHAMIDE. [Concomitant]
     Active Substance: CYCLOPHOSPHAMIDE
  3. EPOPROSTENOL SODIUM. [Suspect]
     Active Substance: EPOPROSTENOL SODIUM
     Indication: PULMONARY ARTERIAL HYPERTENSION
     Route: 042
  4. DOBUTAMINE [Concomitant]
     Active Substance: DOBUTAMINE HYDROCHLORIDE
  5. EPIRUBICIN [Concomitant]
     Active Substance: EPIRUBICIN
  6. HEPARIN [Concomitant]
     Active Substance: HEPARIN SODIUM
  7. DOCETAXEL. [Concomitant]
     Active Substance: DOCETAXEL

REACTIONS (6)
  - Metastases to lymph nodes [Not Recovered/Not Resolved]
  - Death [Fatal]
  - Therapeutic response decreased [Not Recovered/Not Resolved]
  - Pulmonary infarction [Unknown]
  - Pulmonary tumour thrombotic microangiopathy [Unknown]
  - Respiratory failure [Unknown]
